FAERS Safety Report 8299443-8 (Version None)
Quarter: 2012Q2

REPORT INFORMATION
  Report Type: 
  Country: None (occurrence: None)
  Receive Date: 20120419
  Receipt Date: 20111104
  Transmission Date: 20120825
  Serious: Yes (Death)
  Sender: FDA-Public Use
  Company Number: US-GENZYME-RENA-1001316

PATIENT
  Sex: Male

DRUGS (1)
  1. ANTI-THYMOCYTE GLOBULIN NOS [Suspect]

REACTIONS (1)
  - DEATH [None]
